FAERS Safety Report 12745906 (Version 3)
Quarter: 2016Q4

REPORT INFORMATION
  Report Type: Spontaneous
  Country: GB (occurrence: GB)
  Receive Date: 20160915
  Receipt Date: 20161025
  Transmission Date: 20170207
  Serious: Yes (Hospitalization, Other)
  Sender: FDA-Public Use
  Company Number: GB-GLAXOSMITHKLINE-GB2016GSK131382

PATIENT
  Age: 53 Year
  Sex: Female

DRUGS (9)
  1. EPILIM [Concomitant]
     Active Substance: VALPROATE SODIUM
  2. DILANTIN [Concomitant]
     Active Substance: PHENYTOIN
  3. KEPPRA [Concomitant]
     Active Substance: LEVETIRACETAM
  4. ZINC [Concomitant]
     Active Substance: ZINC\ZINC CHLORIDE
  5. SELENIUM [Concomitant]
     Active Substance: SELENIUM
  6. PHENOBARBITAL SODIUM. [Concomitant]
     Active Substance: PHENOBARBITAL SODIUM
  7. LAMOTRIGINE. [Suspect]
     Active Substance: LAMOTRIGINE
     Indication: PRODUCT USED FOR UNKNOWN INDICATION
     Dosage: UNK
     Route: 048
     Dates: start: 2010
  8. LAMOTRIGINE. [Suspect]
     Active Substance: LAMOTRIGINE
     Dosage: UNK UNK, BID
     Dates: start: 20160824
  9. ANDREWS LIVER SALTS [Concomitant]
     Active Substance: ANHYDROUS CITRIC ACID\BICARBONATE ION\MAGNESIUM CATION
     Dosage: 1 UNK, 1D

REACTIONS (9)
  - Pallor [Unknown]
  - Epilepsy [Unknown]
  - Tongue discolouration [Recovered/Resolved]
  - Throat lesion [Unknown]
  - Loss of consciousness [Recovering/Resolving]
  - Ill-defined disorder [Recovering/Resolving]
  - Amnesia [Unknown]
  - Swollen tongue [Recovered/Resolved]
  - Seizure [Unknown]

NARRATIVE: CASE EVENT DATE: 20100510
